FAERS Safety Report 13978540 (Version 1)
Quarter: 2017Q3

REPORT INFORMATION
  Report Type: Spontaneous
  Country: GB (occurrence: GB)
  Receive Date: 20170915
  Receipt Date: 20170915
  Transmission Date: 20171128
  Serious: Yes (Hospitalization)
  Sender: FDA-Public Use
  Company Number: GB-PFIZER INC-2015265506

PATIENT
  Age: 15 Year
  Sex: Female

DRUGS (6)
  1. VINCRISTINE SULFATE. [Suspect]
     Active Substance: VINCRISTINE SULFATE
     Indication: B-CELL LYMPHOMA
     Dosage: 0.6 MG, DAILY (CUMULATIVE DOSE BEFORE EVENT ONSET OF 3.2 MG)
     Route: 042
     Dates: start: 20150629, end: 20150702
  2. ETOPOSIDE. [Suspect]
     Active Substance: ETOPOSIDE
     Indication: B-CELL LYMPHOMA
     Dosage: 110 MG, DAILY (CUMULATIVE DOSE BEFORE EVENT ONSET OF 440 MG)
     Route: 042
     Dates: start: 20150629, end: 20150702
  3. DOXORUBICIN [Suspect]
     Active Substance: DOXORUBICIN
     Indication: B-CELL LYMPHOMA
     Dosage: 21 MG, DAILY (CUMULATIVE DOSE BEFORE EVENT ONSET OF  84 MG)
     Route: 042
     Dates: start: 20150629, end: 20150702
  4. MABTHERA [Suspect]
     Active Substance: RITUXIMAB
     Indication: B-CELL LYMPHOMA
     Dosage: 560 MG, SINGLE
     Route: 042
     Dates: start: 20150629, end: 20150629
  5. PREDNISOLONE. [Concomitant]
     Active Substance: PREDNISOLONE
     Indication: B-CELL LYMPHOMA
     Dosage: UNK
     Dates: start: 20150629
  6. CYCLOPHOSPHAMIDE. [Concomitant]
     Active Substance: CYCLOPHOSPHAMIDE
     Indication: B-CELL LYMPHOMA
     Dosage: UNK
     Dates: start: 20150629

REACTIONS (4)
  - Anaemia [Recovered/Resolved]
  - Diarrhoea [Recovered/Resolved]
  - Febrile neutropenia [Recovered/Resolved]
  - Sepsis [Recovered/Resolved]

NARRATIVE: CASE EVENT DATE: 20150709
